FAERS Safety Report 9118848 (Version 1)
Quarter: 2013Q1

REPORT INFORMATION
  Report Type: Spontaneous
  Country: US (occurrence: US)
  Receive Date: 20130226
  Receipt Date: 20130226
  Transmission Date: 20140127
  Serious: No
  Sender: FDA-Public Use
  Company Number: US-009507513-1302USA009411

PATIENT
  Age: 51 Year
  Sex: Male

DRUGS (4)
  1. PEGINTRON [Suspect]
     Indication: HEPATITIS C
     Dosage: 0.5 ML ONCE WEEKLY
     Route: 058
     Dates: start: 20120524, end: 20130117
  2. VICTRELIS [Suspect]
     Indication: HEPATITIS C
     Dosage: 200 MG FOUR TIMES DAILY
     Route: 048
     Dates: start: 20120524, end: 20130117
  3. REBETOL [Suspect]
     Indication: HEPATITIS C
     Dosage: UNK
     Route: 048
     Dates: start: 20120524, end: 20130117
  4. SYNTHROID [Concomitant]

REACTIONS (6)
  - Hypoaesthesia [Recovering/Resolving]
  - Restlessness [Recovering/Resolving]
  - Chills [Recovering/Resolving]
  - Chest pain [Recovering/Resolving]
  - Nausea [Recovering/Resolving]
  - Inappropriate schedule of drug administration [Unknown]
